FAERS Safety Report 7958251-5 (Version None)
Quarter: 2011Q4

REPORT INFORMATION
  Report Type: 
  Country: None (occurrence: None)
  Receive Date: 20111205
  Receipt Date: 20110926
  Transmission Date: 20120403
  Serious: Yes (Hospitalization)
  Sender: FDA-Public Use
  Company Number: US-ROCHE-GNE324038

PATIENT
  Sex: Male
  Weight: 37.8 kg

DRUGS (17)
  1. ADVAIR DISKUS 100/50 [Concomitant]
  2. TOBRAMYCIN [Concomitant]
  3. MARINOL (UNITED STATES) [Concomitant]
  4. XOLAIR [Suspect]
     Indication: PRODUCT USED FOR UNKNOWN INDICATION
     Dosage: 150 MG/1.2 ML
     Route: 058
     Dates: start: 20110809
  5. E.E.S. [Concomitant]
  6. M.V.I. [Concomitant]
  7. VITAMIN D [Concomitant]
  8. FLONASE [Concomitant]
  9. ADVACAL [Concomitant]
  10. VANCOMYCIN HCL [Concomitant]
  11. SINGULAIR [Concomitant]
  12. TOBI [Concomitant]
  13. PULMOZYME [Concomitant]
  14. NEXIUM [Concomitant]
  15. XOPENEX [Concomitant]
  16. INSULIN [Concomitant]
  17. AMPHOTERICIN B [Concomitant]

REACTIONS (4)
  - PYREXIA [None]
  - TACHYCARDIA [None]
  - CHILLS [None]
  - FLUSHING [None]
